FAERS Safety Report 9515175 (Version 1)
Quarter: 2013Q3

REPORT INFORMATION
  Report Type: Spontaneous
  Country: US (occurrence: US)
  Receive Date: 20130911
  Receipt Date: 20130911
  Transmission Date: 20140515
  Serious: No
  Sender: FDA-Public Use
  Company Number: US-TEVA-431417USA

PATIENT
  Age: 84 Year
  Sex: Male
  Weight: 80.81 kg

DRUGS (3)
  1. PROAIR HFA [Suspect]
     Indication: EMPHYSEMA
     Route: 055
     Dates: start: 20130823
  2. PROVENTI [Suspect]
  3. SPIRIVA [Concomitant]

REACTIONS (3)
  - Dizziness [Not Recovered/Not Resolved]
  - Heart rate increased [Not Recovered/Not Resolved]
  - Feeling of relaxation [Unknown]
